FAERS Safety Report 23666757 (Version 2)
Quarter: 2024Q1

REPORT INFORMATION
  Report Type: Spontaneous
  Country: CN (occurrence: CN)
  Receive Date: 20240325
  Receipt Date: 20240326
  Transmission Date: 20240410
  Serious: Yes (Death, Hospitalization, Other)
  Sender: FDA-Public Use
  Company Number: CN-BEIGENE-BGN-2024-004281

PATIENT

DRUGS (1)
  1. TISLELIZUMAB [Suspect]
     Active Substance: TISLELIZUMAB
     Indication: Bile duct cancer

REACTIONS (7)
  - Death [Fatal]
  - Cerebral haemorrhage [Unknown]
  - Gastric haemorrhage [Unknown]
  - Generalised oedema [Unknown]
  - Intestinal haemorrhage [Unknown]
  - Jaundice [Unknown]
  - Product use issue [Unknown]

NARRATIVE: CASE EVENT DATE: 20240307
